FAERS Safety Report 6498099-4 (Version None)
Quarter: 2009Q4

REPORT INFORMATION
  Report Type: 
  Country: None (occurrence: None)
  Receive Date: 20091127
  Receipt Date: 20090615
  Transmission Date: 20100525
  Serious: Yes (Life-Threatening, Hospitalization)
  Sender: FDA-Public Use
  Company Number: 286542

PATIENT
  Age: 41 Year
  Sex: Female
  Weight: 52.6 kg

DRUGS (8)
  1. NOVOLOG [Suspect]
     Indication: TYPE 1 DIABETES MELLITUS
     Dosage: 5 IU, QD, SUBCUTANEOUS
     Route: 058
     Dates: start: 20050101
  2. LANTUS (INSULIN GLARGINE) SUSPENSION FOR INJECTION [Concomitant]
  3. COSAAR (LOSARTAN POTASSIUM) [Concomitant]
  4. FOLIC ACID [Concomitant]
  5. PERCOCET [Concomitant]
  6. NORVASC /00972401/ (AMLODIPINE) [Concomitant]
  7. ASPIRIN [Concomitant]
  8. MS CONTIN [Concomitant]

REACTIONS (2)
  - BLOOD GLUCOSE INCREASED [None]
  - DIABETIC COMA [None]
